FAERS Safety Report 5003777-X (Version None)
Quarter: 2006Q2

REPORT INFORMATION
  Report Type: 
  Country: None (occurrence: None)
  Receive Date: 20060516
  Receipt Date: 20060217
  Transmission Date: 20061013
  Serious: Yes (Hospitalization)
  Sender: FDA-Public Use
  Company Number: US-MERCK-0602USA04802

PATIENT
  Age: 75 Year
  Sex: Female

DRUGS (1)
  1. VIOXX [Suspect]
     Route: 048

REACTIONS (18)
  - ACUTE MYOCARDIAL INFARCTION [None]
  - ANAEMIA [None]
  - ANXIETY [None]
  - CARDIAC FAILURE CONGESTIVE [None]
  - CARDIAC STRESS TEST ABNORMAL [None]
  - CARDIOMEGALY [None]
  - CARDIOVASCULAR DISORDER [None]
  - CAROTID ARTERY STENOSIS [None]
  - COLONIC POLYP [None]
  - DIVERTICULUM INTESTINAL [None]
  - DYSPNOEA [None]
  - GASTRIC ULCER [None]
  - HAEMORRHOIDS [None]
  - INTENTION TREMOR [None]
  - NEUROPATHY PERIPHERAL [None]
  - PAIN [None]
  - PAIN IN EXTREMITY [None]
  - URINARY TRACT INFECTION [None]
